FAERS Safety Report 7597045-X (Version None)
Quarter: 2011Q3

REPORT INFORMATION
  Report Type: 
  Country: None (occurrence: None)
  Receive Date: 20110708
  Receipt Date: 20110707
  Transmission Date: 20111222
  Serious: Yes (Hospitalization, Disabling, Other)
  Sender: FDA-Public Use
  Company Number: CH-PFIZER INC-2011130946

PATIENT
  Age: 47 Year
  Sex: Female

DRUGS (4)
  1. LOCABIOTAL [Concomitant]
     Indication: NASOPHARYNGITIS
     Dosage: UNK
     Route: 045
     Dates: start: 20110118, end: 20110215
  2. LYRICA [Suspect]
     Indication: PAIN
     Dosage: 50 MG, 3X/DAY
     Route: 048
     Dates: start: 20110208, end: 20110314
  3. SINUPRET [Concomitant]
     Indication: NASOPHARYNGITIS
     Dosage: UNK
     Route: 048
     Dates: start: 20110118, end: 20110215
  4. METOPROLOL TARTRATE [Concomitant]
     Indication: PALPITATIONS
     Dosage: 50 MG, 1X/DAY
     Route: 048
     Dates: start: 20090101, end: 20110525

REACTIONS (10)
  - HEADACHE [None]
  - FACE OEDEMA [None]
  - SYSTEMIC INFLAMMATORY RESPONSE SYNDROME [None]
  - LYMPHADENOPATHY [None]
  - PRURITUS [None]
  - INTERSTITIAL LUNG DISEASE [None]
  - DRUG RASH WITH EOSINOPHILIA AND SYSTEMIC SYMPTOMS [None]
  - EOSINOPHILIA [None]
  - RASH MACULO-PAPULAR [None]
  - ABDOMINAL PAIN [None]
